FAERS Safety Report 16163672 (Version 1)
Quarter: 2019Q2

REPORT INFORMATION
  Report Type: Spontaneous
  Country: CA (occurrence: CA)
  Receive Date: 20190405
  Receipt Date: 20190405
  Transmission Date: 20190711
  Serious: Yes (Hospitalization)
  Sender: FDA-Public Use
  Company Number: CA-FRESENIUS KABI-FK201903481

PATIENT
  Age: 64 Year
  Sex: Male

DRUGS (6)
  1. SODIUM CHLORIDE INJECTION, USP 0.9% [Suspect]
     Active Substance: SODIUM CHLORIDE
     Indication: HYPONATRAEMIA
  2. SODIUM CHLORIDE INJECTION, USP 0.9% [Suspect]
     Active Substance: SODIUM CHLORIDE
     Indication: HYPOMAGNESAEMIA
     Dosage: CONTINUOUS INFUSION OVER FOUR HOURS AT 125 ML/HR
     Route: 042
     Dates: start: 20190207
  3. SODIUM PHOSPHATE [Suspect]
     Active Substance: SODIUM PHOSPHATE
     Indication: HYPONATRAEMIA
  4. SODIUM PHOSPHATE [Suspect]
     Active Substance: SODIUM PHOSPHATE
     Indication: HYPOMAGNESAEMIA
     Dosage: CONTINUOUS INFUSION OVER FOUR HOURS AT 125 ML/HR
     Route: 042
     Dates: start: 20190207
  5. MAGNESIUM SULFATE INJECTION, USP [Suspect]
     Active Substance: MAGNESIUM SULFATE
     Indication: HYPOMAGNESAEMIA
     Dosage: CONTINUOUS INFUSION OVER FOUR HOURS AT 125 ML/HR
     Route: 042
     Dates: start: 20190207
  6. MAGNESIUM SULFATE INJECTION, USP [Suspect]
     Active Substance: MAGNESIUM SULFATE
     Indication: HYPONATRAEMIA

REACTIONS (2)
  - Dyspnoea [Unknown]
  - Palpitations [Unknown]

NARRATIVE: CASE EVENT DATE: 20190322
